FAERS Safety Report 5051147-0 (Version None)
Quarter: 2006Q3

REPORT INFORMATION
  Report Type: 
  Country: None (occurrence: None)
  Receive Date: 20060714
  Receipt Date: 20060228
  Transmission Date: 20061208
  Serious: Yes (Death, Life-Threatening)
  Sender: FDA-Public Use
  Company Number: DE-NOVOPROD-251200

PATIENT
  Age: 41 Year
  Sex: Male
  Weight: 160 kg

DRUGS (7)
  1. NOVOSEVEN [Suspect]
     Indication: THORACIC HAEMORRHAGE
     Dosage: 480 KIU, SINGLE
     Route: 042
     Dates: start: 20060219, end: 20060219
  2. ARGATROBAN [Concomitant]
     Dosage: 2.4-72
     Route: 042
     Dates: start: 20060110, end: 20060131
  3. ARGATROBAN [Concomitant]
     Dosage: UNK MG, QD
     Route: 042
     Dates: start: 20060207, end: 20060216
  4. DESMOPRESSIN [Concomitant]
     Dosage: 24 UG, QD
     Route: 042
     Dates: start: 20060218, end: 20060218
  5. FIBRINOGEN [Concomitant]
     Dosage: 2 G, QD
     Route: 042
     Dates: start: 20060218, end: 20060218
  6. FRESH FROZEN PLASMA [Concomitant]
  7. PLATELETS [Concomitant]

REACTIONS (2)
  - PULMONARY EMBOLISM [None]
  - VENOUS THROMBOSIS [None]
